FAERS Safety Report 18478132 (Version 1)
Quarter: 2020Q4

REPORT INFORMATION
  Report Type: Spontaneous
  Country: US (occurrence: US)
  Receive Date: 20201108
  Receipt Date: 20201108
  Transmission Date: 20210114
  Serious: Yes (Life-Threatening, Hospitalization, Other)
  Sender: FDA-Public Use
  Company Number: US-DRREDDYS-USA/USA/20/0128838

PATIENT
  Age: 29 Year
  Sex: Female

DRUGS (9)
  1. PROPOFOL INJECTABLE EMULSION [Suspect]
     Active Substance: PROPOFOL
     Indication: SEDATIVE THERAPY
  2. ALPRAZOLAM. [Suspect]
     Active Substance: ALPRAZOLAM
     Indication: PRODUCT USED FOR UNKNOWN INDICATION
  3. BUPRENORPHINE. [Suspect]
     Active Substance: BUPRENORPHINE
     Indication: PRODUCT USED FOR UNKNOWN INDICATION
  4. QUETIAPINE FUMARATE TABLETS [Suspect]
     Active Substance: QUETIAPINE FUMARATE
     Indication: PRODUCT USED FOR UNKNOWN INDICATION
  5. GABAPENTIN. [Suspect]
     Active Substance: GABAPENTIN
     Indication: PRODUCT USED FOR UNKNOWN INDICATION
  6. SALBUTAMOL [Suspect]
     Active Substance: ALBUTEROL
     Indication: PRODUCT USED FOR UNKNOWN INDICATION
  7. MIDAZOLAM. [Suspect]
     Active Substance: MIDAZOLAM
     Indication: SEDATIVE THERAPY
  8. LEVETIRACETAM. [Suspect]
     Active Substance: LEVETIRACETAM
     Indication: PRODUCT USED FOR UNKNOWN INDICATION
     Route: 048
  9. FENTANYL CITRATE. [Suspect]
     Active Substance: FENTANYL CITRATE
     Indication: SEDATIVE THERAPY

REACTIONS (14)
  - Sepsis [Unknown]
  - Enterobacter pneumonia [Recovered/Resolved]
  - Pulmonary alveolar haemorrhage [Unknown]
  - Atelectasis [Unknown]
  - Caesarean section [Unknown]
  - Tachycardia [Unknown]
  - Pneumonia staphylococcal [Recovered/Resolved]
  - Diaphragmatic paralysis [Unknown]
  - Rhinovirus infection [Unknown]
  - Exposure during pregnancy [Unknown]
  - Acute respiratory distress syndrome [Unknown]
  - Central-alveolar hypoventilation [Unknown]
  - Hypotension [Unknown]
  - Vascular shunt [Unknown]
